FAERS Safety Report 17398133 (Version 7)
Quarter: 2020Q4

REPORT INFORMATION
  Report Type: Report from Study
  Country: IT (occurrence: IT)
  Receive Date: 20200210
  Receipt Date: 20201111
  Transmission Date: 20210113
  Serious: Yes (Hospitalization)
  Sender: FDA-Public Use
  Company Number: IT-CELGENEUS-ITA-20200200026

PATIENT
  Age: 39 Year
  Sex: Male
  Weight: 74 kg

DRUGS (28)
  1. HEPARIN [Concomitant]
     Active Substance: HEPARIN SODIUM
     Indication: POSTOPERATIVE WOUND INFECTION
     Route: 065
     Dates: end: 20200225
  2. TARGIN [Concomitant]
     Active Substance: NALOXONE HYDROCHLORIDE\OXYCODONE HYDROCHLORIDE
     Indication: MUSCULOSKELETAL CHEST PAIN
     Dosage: 10 MILLIGRAM
     Route: 048
     Dates: start: 20200109
  3. DICLOREUM [Concomitant]
     Active Substance: DICLOFENAC SODIUM
     Indication: BACK PAIN
     Dosage: 75 MILLIGRAM
     Route: 030
     Dates: start: 20200109
  4. MUSCORIL [Concomitant]
     Active Substance: THIOCOLCHICOSIDE
     Indication: BACK PAIN
     Dosage: 8 MILLIGRAM
     Route: 030
     Dates: start: 20200109
  5. OMEPRAZOLE. [Concomitant]
     Active Substance: OMEPRAZOLE
     Indication: POSTOPERATIVE WOUND INFECTION
     Route: 065
     Dates: end: 20200225
  6. DICLOFENAC SODIUM. [Concomitant]
     Active Substance: DICLOFENAC SODIUM
     Indication: BACK PAIN
     Dosage: 75 MILLIGRAM
     Route: 030
     Dates: start: 20191011
  7. BETAMETHASONE. [Concomitant]
     Active Substance: BETAMETHASONE
     Indication: BACK PAIN
     Dosage: 1.5 MILLIGRAM
     Route: 030
     Dates: start: 20191011
  8. EFFERALGAN [Concomitant]
     Active Substance: ACETAMINOPHEN
     Indication: OROPHARYNGEAL PAIN
     Dosage: 1000 MILLIGRAM
     Route: 048
     Dates: start: 20191218
  9. DEXAMETHASONE. [Concomitant]
     Active Substance: DEXAMETHASONE
     Indication: POSTOPERATIVE WOUND INFECTION
     Route: 065
     Dates: end: 20200225
  10. L-ACETYLCARNITINE [Concomitant]
     Indication: BACK PAIN
     Dosage: 500 MILLIGRAM
     Route: 048
     Dates: start: 20191019
  11. LUSPATERCEPT. [Suspect]
     Active Substance: LUSPATERCEPT
     Indication: THALASSAEMIA BETA
     Dosage: 1 MILLIGRAM/KILOGRAM
     Route: 058
     Dates: start: 20191002, end: 20191002
  12. TIZANIDINE. [Concomitant]
     Active Substance: TIZANIDINE
     Indication: BACK PAIN
     Dosage: 2 MILLIGRAM
     Route: 048
     Dates: start: 20191019
  13. DOBETIN [Concomitant]
     Indication: BACK PAIN
     Dosage: 500 UG/DOSE
     Route: 030
     Dates: start: 20200109
  14. BENTELAN [Concomitant]
     Active Substance: BETAMETHASONE SODIUM PHOSPHATE
     Indication: BACK PAIN
     Dosage: 1.5 MILLIGRAM
     Route: 030
     Dates: start: 20200109
  15. IBUPROFEN. [Concomitant]
     Active Substance: IBUPROFEN
     Indication: EXTRAMEDULLARY HAEMOPOIESIS
     Dosage: 400 MILLIGRAM
     Route: 048
     Dates: start: 20200206
  16. PARACETAMOL [Concomitant]
     Active Substance: ACETAMINOPHEN
     Indication: POSTOPERATIVE WOUND INFECTION
     Dosage: 3000 MILLIGRAM
     Route: 048
     Dates: start: 20200206
  17. DEXAMETHASONE. [Concomitant]
     Active Substance: DEXAMETHASONE
     Indication: EXTRAMEDULLARY HAEMOPOIESIS
     Dosage: 8 MILLIGRAM
     Route: 030
     Dates: start: 20200206
  18. CODEINE [Concomitant]
     Active Substance: CODEINE
     Indication: POSTOPERATIVE WOUND INFECTION
     Route: 065
     Dates: end: 20200225
  19. LEVOXACIN [Concomitant]
     Active Substance: LEVOFLOXACIN
     Indication: POSTOPERATIVE WOUND INFECTION
     Route: 065
     Dates: end: 20200225
  20. THIOCOLCHICOSIDE [Concomitant]
     Active Substance: THIOCOLCHICOSIDE
     Indication: BACK PAIN
     Dosage: 4 MILLIGRAM
     Route: 030
     Dates: start: 20191011
  21. BISOLVON LINCTUS [Concomitant]
     Indication: OROPHARYNGEAL PAIN
     Dosage: 4 MILLIGRAM
     Route: 048
     Dates: start: 20191218
  22. FELDENE [Concomitant]
     Active Substance: PIROXICAM
     Indication: MUSCULOSKELETAL CHEST PAIN
     Dosage: 20 MILLIGRAM
     Route: 048
     Dates: start: 20200107
  23. LUSPATERCEPT. [Suspect]
     Active Substance: LUSPATERCEPT
     Dosage: 1.25 MILLIGRAM/KILOGRAM
     Route: 058
     Dates: start: 20200116, end: 20200116
  24. OMEPRAZOLE. [Concomitant]
     Active Substance: OMEPRAZOLE
     Indication: PROPHYLAXIS
     Dosage: 20 MILLIGRAM
     Route: 048
     Dates: start: 20200109
  25. IBUPROFEN. [Concomitant]
     Active Substance: IBUPROFEN
     Indication: POSTOPERATIVE WOUND INFECTION
     Route: 065
     Dates: end: 20200225
  26. PARACETAMOL [Concomitant]
     Active Substance: ACETAMINOPHEN
     Indication: EXTRAMEDULLARY HAEMOPOIESIS
  27. HEPARIN [Concomitant]
     Active Substance: HEPARIN SODIUM
     Indication: EXTRAMEDULLARY HAEMOPOIESIS
     Dosage: .4 MILLILITER
     Route: 058
     Dates: start: 20200206
  28. KETOPROFENE [Concomitant]
     Active Substance: KETOPROFEN
     Indication: BACK PAIN
     Dosage: 80 MILLIGRAM
     Route: 048
     Dates: start: 20200118

REACTIONS (1)
  - Extramedullary haemopoiesis [Recovered/Resolved with Sequelae]

NARRATIVE: CASE EVENT DATE: 20200102
